FAERS Safety Report 4993266-0 (Version None)
Quarter: 2006Q1

REPORT INFORMATION
  Report Type: 
  Country: None (occurrence: None)
  Receive Date: 20060314
  Receipt Date: 20050601
  Transmission Date: 20060701
  Serious: Yes (Other)
  Sender: FDA-Public Use
  Company Number: 200511582BCC

PATIENT
  Age: 57 Year
  Sex: Male
  Weight: 83.0083 kg

DRUGS (2)
  1. ALEVE [Suspect]
     Indication: INFLAMMATION
     Dosage: 220 MG, BID, ORAL
     Route: 048
     Dates: start: 20050404, end: 20050406
  2. ALEVE [Suspect]
     Indication: SHOULDER PAIN
     Dosage: 220 MG, BID, ORAL
     Route: 048
     Dates: start: 20050404, end: 20050406

REACTIONS (3)
  - ABDOMINAL PAIN UPPER [None]
  - BOWEL SOUNDS ABNORMAL [None]
  - HAEMATOCHEZIA [None]
